FAERS Safety Report 7414068-1 (Version None)
Quarter: 2011Q2

REPORT INFORMATION
  Report Type: 
  Country: None (occurrence: None)
  Receive Date: 20110414
  Receipt Date: 20110408
  Transmission Date: 20111010
  Serious: No
  Sender: FDA-Public Use
  Company Number: US-PFIZER INC-2011078407

PATIENT
  Sex: Female
  Weight: 81 kg

DRUGS (6)
  1. LIPITOR [Suspect]
     Indication: BLOOD CHOLESTEROL INCREASED
     Dosage: 80 MG, DAILY
     Route: 048
     Dates: start: 20050101
  2. ONGLYZA [Concomitant]
     Indication: DIABETES MELLITUS
     Dosage: UNK
  3. DIOVAN HCT [Concomitant]
     Indication: HYPERTENSION
     Dosage: UNK
  4. GLIMEPIRIDE [Concomitant]
     Indication: DIABETES MELLITUS
     Dosage: UNK
  5. ZETIA [Concomitant]
     Indication: BLOOD CHOLESTEROL INCREASED
     Dosage: UNK
  6. AGGRENOX [Concomitant]
     Indication: BLOOD DISORDER
     Dosage: UNK

REACTIONS (3)
  - TREMOR [None]
  - RASH [None]
  - PRURITUS [None]
